FAERS Safety Report 12451084 (Version 6)
Quarter: 2019Q2

REPORT INFORMATION
  Report Type: Spontaneous
  Country: US (occurrence: US)
  Receive Date: 20160609
  Receipt Date: 20190401
  Transmission Date: 20190711
  Serious: Yes (Hospitalization, Other)
  Sender: FDA-Public Use
  Company Number: US-DSJP-DSU-2015-139855

PATIENT

DRUGS (12)
  1. BENICAR [Suspect]
     Active Substance: OLMESARTAN MEDOXOMIL
     Dosage: UNK
     Dates: end: 201408
  2. BENICAR HCT [Suspect]
     Active Substance: HYDROCHLOROTHIAZIDE\OLMESARTAN MEDOXOMIL
     Indication: HYPERTENSION
     Dosage: 40/25 MG, QD
     Dates: start: 20100101, end: 2011
  3. PRILOSEC [Concomitant]
     Active Substance: OMEPRAZOLE MAGNESIUM
     Indication: GASTROOESOPHAGEAL REFLUX DISEASE
     Dosage: 20 MG, QD
     Route: 048
  4. BENICAR [Suspect]
     Active Substance: OLMESARTAN MEDOXOMIL
     Indication: HYPERTENSION
     Dosage: UNK
     Dates: start: 20100101, end: 201308
  5. ENTOCORT [Concomitant]
     Active Substance: BUDESONIDE
     Indication: COLITIS
     Dosage: 6 MG, QD
     Route: 048
  6. XALATAN [Concomitant]
     Active Substance: LATANOPROST
     Indication: OCULAR HYPERTENSION
     Dosage: 1 DROPS, QD
  7. PROBIOTICS                         /07325001/ [Concomitant]
     Active Substance: BIFIDOBACTERIUM LONGUM\LACTOBACILLUS ACIDOPHILUS\LACTOBACILLUS RHAMNOSUS
     Indication: PRODUCT USED FOR UNKNOWN INDICATION
     Dosage: UNK
  8. BENICAR HCT [Suspect]
     Active Substance: HYDROCHLOROTHIAZIDE\OLMESARTAN MEDOXOMIL
     Dosage: 40-12.5 MG, QD
     Route: 048
  9. LIPITOR [Concomitant]
     Active Substance: ATORVASTATIN CALCIUM
     Indication: PRODUCT USED FOR UNKNOWN INDICATION
     Dosage: 6 MG, QD
     Route: 048
  10. AMLODIPINE BESYLATE. [Concomitant]
     Active Substance: AMLODIPINE BESYLATE
     Indication: HYPERTENSION
     Dosage: 10 MG, QD
     Route: 048
  11. BENICAR [Suspect]
     Active Substance: OLMESARTAN MEDOXOMIL
     Dosage: 40 MG, QD
     Route: 048
     Dates: start: 2011, end: 2014
  12. ASPIRIN                            /00002701/ [Concomitant]
     Active Substance: ASPIRIN
     Indication: ISCHAEMIC HEART DISEASE PROPHYLAXIS
     Dosage: 81 MG, QD
     Route: 048

REACTIONS (9)
  - Syncope [Not Recovered/Not Resolved]
  - Sprue-like enteropathy [Recovering/Resolving]
  - Barrett^s oesophagus [Not Recovered/Not Resolved]
  - Clostridium difficile colitis [Unknown]
  - Acute kidney injury [Unknown]
  - Haemorrhoids [Unknown]
  - Large intestine polyp [Recovered/Resolved]
  - Hiatus hernia [Not Recovered/Not Resolved]
  - Coeliac disease [Recovered/Resolved]

NARRATIVE: CASE EVENT DATE: 2011
